FAERS Safety Report 8563593-9 (Version None)
Quarter: 2012Q3

REPORT INFORMATION
  Report Type: 
  Country: None (occurrence: None)
  Receive Date: 20120803
  Receipt Date: 20120730
  Transmission Date: 20120928
  Serious: Yes (Hospitalization, Other)
  Sender: FDA-Public Use
  Company Number: FR-009507513-1208FRA000335

PATIENT

DRUGS (3)
  1. TRUVADA [Concomitant]
     Indication: HIV INFECTION
     Dosage: 1 DF, QD
     Route: 048
  2. PROPRANOLOL [Concomitant]
     Dosage: 1 DF, UNK
     Route: 048
  3. ISENTRESS [Suspect]
     Indication: HIV INFECTION
     Dosage: 1 DF, BID
     Route: 048
     Dates: start: 20120521, end: 20120704

REACTIONS (1)
  - DRUG RASH WITH EOSINOPHILIA AND SYSTEMIC SYMPTOMS [None]
